FAERS Safety Report 7527751-4 (Version None)
Quarter: 2011Q2

REPORT INFORMATION
  Report Type: 
  Country: None (occurrence: None)
  Receive Date: 20110607
  Receipt Date: 20110527
  Transmission Date: 20111010
  Serious: Yes (Hospitalization)
  Sender: FDA-Public Use
  Company Number: DK-NOVOPROD-329042

PATIENT
  Sex: Female

DRUGS (2)
  1. VICTOZA [Suspect]
     Dosage: 0.6 MG, QD
     Route: 065
  2. VICTOZA [Suspect]
     Indication: PRODUCT USED FOR UNKNOWN INDICATION
     Route: 065

REACTIONS (1)
  - RENAL IMPAIRMENT [None]
